FAERS Safety Report 22295242 (Version 1)
Quarter: 2023Q2

REPORT INFORMATION
  Report Type: Spontaneous
  Country: US (occurrence: None)
  Receive Date: 20230506
  Receipt Date: 20230506
  Transmission Date: 20230722
  Serious: Yes (Other)
  Sender: FDA-Public Use
  Company Number: None

PATIENT
  Age: 45 Year
  Sex: Male
  Weight: 103.5 kg

DRUGS (1)
  1. HYDROCORTISONE [Suspect]
     Active Substance: HYDROCORTISONE
     Indication: Addison^s disease
     Dosage: OTHER QUANTITY : 150 TABLET(S);?FREQUENCY : 4 TIMES A DAY;?
     Route: 048

REACTIONS (5)
  - Product supply issue [None]
  - Product substitution issue [None]
  - Fatigue [None]
  - Asthenia [None]
  - Impaired work ability [None]

NARRATIVE: CASE EVENT DATE: 20230306
